FAERS Safety Report 8197922-5 (Version None)
Quarter: 2012Q1

REPORT INFORMATION
  Report Type: 
  Country: None (occurrence: None)
  Receive Date: 20120309
  Receipt Date: 20120302
  Transmission Date: 20120608
  Serious: Yes (Death)
  Sender: FDA-Public Use
  Company Number: MX-SANOFI-AVENTIS-2012SA014374

PATIENT
  Age: 71 Year
  Sex: Female

DRUGS (4)
  1. LOSARTAN POTASSIUM [Suspect]
     Route: 048
     Dates: start: 20070101, end: 20120222
  2. LANTUS [Suspect]
     Indication: TYPE 2 DIABETES MELLITUS
     Route: 058
     Dates: start: 20070101, end: 20120208
  3. LANTUS [Suspect]
     Route: 058
     Dates: start: 20120208, end: 20120222
  4. NIFEDIPINE [Suspect]
     Route: 048
     Dates: start: 20070101, end: 20120222

REACTIONS (1)
  - MYOCARDIAL INFARCTION [None]
